FAERS Safety Report 10967101 (Version 2)
Quarter: 2015Q2

REPORT INFORMATION
  Report Type: Spontaneous
  Country: US (occurrence: US)
  Receive Date: 20150330
  Receipt Date: 20150507
  Transmission Date: 20150821
  Serious: Yes (Other)
  Sender: FDA-Public Use
  Company Number: ALCN2015US001936

PATIENT

DRUGS (1)
  1. BSS PLUS [Suspect]
     Active Substance: CALCIUM CHLORIDE\DEXTROSE\MAGNESIUM CHLORIDE\OXIGLUTATIONE\POTASSIUM CHLORIDE\SODIUM BICARBONATE\SODIUM CHLORIDE\SODIUM PHOSPHATE\SODIUM PHOSPHATE, DIBASIC
     Indication: SCLERAL BUCKLING SURGERY
     Dosage: UNK
     Route: 065
     Dates: start: 20150312, end: 20150312

REACTIONS (3)
  - Toxic anterior segment syndrome [Unknown]
  - Corneal oedema [Unknown]
  - Off label use [Unknown]

NARRATIVE: CASE EVENT DATE: 20150312
